FAERS Safety Report 17043877 (Version 1)
Quarter: 2019Q4

REPORT INFORMATION
  Report Type: Spontaneous
  Country: US (occurrence: US)
  Receive Date: 20191118
  Receipt Date: 20191118
  Transmission Date: 20200122
  Serious: Yes (Death, Hospitalization)
  Sender: FDA-Public Use
  Company Number: US-MYLANLABS-2019M1109714

PATIENT
  Age: 32 Year
  Sex: Male
  Weight: 72 kg

DRUGS (19)
  1. PYRAZINAMIDE. [Concomitant]
     Active Substance: PYRAZINAMIDE
     Indication: TUBERCULOSIS
     Dosage: UNK
     Route: 048
  2. ISAVUCONAZONIUM SULFATE [Concomitant]
     Active Substance: ISAVUCONAZONIUM SULFATE
     Dosage: 372 MILLIGRAM, QD
     Route: 042
  3. MICAFUNGIN. [Suspect]
     Active Substance: MICAFUNGIN SODIUM
     Indication: ASPERGILLUS INFECTION
  4. VORICONAZOLE. [Interacting]
     Active Substance: VORICONAZOLE
     Dosage: 12 HOURS
     Route: 042
  5. VORICONAZOLE. [Interacting]
     Active Substance: VORICONAZOLE
     Dosage: 7.5 MILLIGRAM/KILOGRAM, Q8H
     Route: 042
  6. AMBISOME [Suspect]
     Active Substance: AMPHOTERICIN B
     Indication: ASPERGILLUS INFECTION
  7. AMBISOME [Suspect]
     Active Substance: AMPHOTERICIN B
     Indication: CENTRAL NERVOUS SYSTEM FUNGAL INFECTION
  8. ETHAMBUTOL [Concomitant]
     Active Substance: ETHAMBUTOL HYDROCHLORIDE
     Indication: TUBERCULOSIS
     Dosage: UNK
     Route: 048
  9. ISAVUCONAZONIUM SULFATE [Concomitant]
     Active Substance: ISAVUCONAZONIUM SULFATE
     Indication: INFECTION
     Dosage: FOR 6 DOSES; LOADING DOSE
     Route: 042
  10. PREDNISONE. [Suspect]
     Active Substance: PREDNISONE
     Indication: DERMATOMYOSITIS
     Dosage: 30-60 MG DAILY FOR MORE THAN A YEAR
     Route: 065
  11. VORICONAZOLE. [Interacting]
     Active Substance: VORICONAZOLE
     Indication: ASPERGILLUS INFECTION
     Dosage: 12 HOURS
     Route: 042
  12. AMBISOME [Suspect]
     Active Substance: AMPHOTERICIN B
     Indication: MENINGITIS FUNGAL
     Dosage: 7.5 MILLIGRAM/KILOGRAM, QD
     Route: 042
  13. VORICONAZOLE. [Interacting]
     Active Substance: VORICONAZOLE
     Indication: CENTRAL NERVOUS SYSTEM FUNGAL INFECTION
     Dosage: 12 HOURS
     Route: 042
  14. VORICONAZOLE. [Interacting]
     Active Substance: VORICONAZOLE
     Dosage: 6.5 MILLIGRAM/KILOGRAM, Q8H
     Route: 042
  15. MICAFUNGIN. [Suspect]
     Active Substance: MICAFUNGIN SODIUM
     Indication: CENTRAL NERVOUS SYSTEM FUNGAL INFECTION
  16. RIFAMPICIN [Interacting]
     Active Substance: RIFAMPIN
     Indication: TUBERCULOSIS
     Dosage: UNK
     Route: 048
  17. VORICONAZOLE. [Interacting]
     Active Substance: VORICONAZOLE
     Dosage: 8.5 MILLIGRAM/KILOGRAM, Q8H
     Route: 042
  18. MICAFUNGIN. [Suspect]
     Active Substance: MICAFUNGIN SODIUM
     Indication: FUNGAL INFECTION
     Dosage: 150 MILLIGRAM, QD
     Route: 042
  19. ISONIAZID. [Concomitant]
     Active Substance: ISONIAZID
     Indication: TUBERCULOSIS
     Dosage: UNK
     Route: 048

REACTIONS (5)
  - Aspergillus infection [Fatal]
  - Drug ineffective [Fatal]
  - Drug level below therapeutic [Unknown]
  - Central nervous system fungal infection [Fatal]
  - Drug interaction [Unknown]
